FAERS Safety Report 5291820-2 (Version None)
Quarter: 2007Q2

REPORT INFORMATION
  Report Type: 
  Country: None (occurrence: None)
  Receive Date: 20070406
  Receipt Date: 20070406
  Transmission Date: 20071010
  Serious: No
  Sender: FDA-Public Use
  Company Number: None

PATIENT
  Age: 56 Year
  Sex: Female

DRUGS (1)
  1. CEFEPIME [Suspect]
     Indication: INFECTION
     Dosage: 2G Q8? IV
     Route: 042
     Dates: start: 20070225, end: 20070303

REACTIONS (3)
  - LEUKOPENIA [None]
  - RASH [None]
  - THROMBOCYTOPENIA [None]
